FAERS Safety Report 8248624-8 (Version None)
Quarter: 2012Q1

REPORT INFORMATION
  Report Type: 
  Country: None (occurrence: None)
  Receive Date: 20120330
  Receipt Date: 20120313
  Transmission Date: 20120608
  Serious: Yes (Other)
  Sender: FDA-Public Use
  Company Number: PHHY2012EC026931

PATIENT
  Sex: Female

DRUGS (4)
  1. EUCAMIEL [Concomitant]
     Dosage: UNK UKN, UNK
  2. RASILEZ HCT [Suspect]
     Indication: HYPERTENSION
     Dosage: 1 DF (150/12.5 MG), DAILY
     Route: 048
     Dates: start: 20101222
  3. DENSIBONE D [Concomitant]
     Dosage: UNK UKN, UNK
  4. EXFORGE [Suspect]
     Indication: HYPERTENSION
     Dosage: 1 DF (160/ 5 MG), DAILY
     Route: 048
     Dates: start: 20110325

REACTIONS (6)
  - GASTROENTERITIS [None]
  - CHILLS [None]
  - PYREXIA [None]
  - FLATULENCE [None]
  - ABDOMINAL PAIN [None]
  - DIARRHOEA [None]
